FAERS Safety Report 5658654-8 (Version None)
Quarter: 2008Q1

REPORT INFORMATION
  Report Type: 
  Country: None (occurrence: None)
  Receive Date: 20080310
  Receipt Date: 20070731
  Transmission Date: 20080703
  Serious: No
  Sender: FDA-Public Use
  Company Number: US-BAYER-200710939BCC

PATIENT
  Age: 50 Year
  Sex: Female
  Weight: 91 kg

DRUGS (8)
  1. ALEVE [Suspect]
     Indication: BACK PAIN
     Dosage: TOTAL DAILY DOSE: 220 MG  UNIT DOSE: 220 MG
     Route: 048
     Dates: start: 20070324
  2. ALEVE [Suspect]
     Dosage: TOTAL DAILY DOSE: 440 MG  UNIT DOSE: 220 MG
     Route: 048
     Dates: start: 20070325
  3. ALEVE [Suspect]
     Dosage: TOTAL DAILY DOSE: 220 MG  UNIT DOSE: 220 MG
     Route: 048
     Dates: start: 20070326
  4. OXYCONTIN [Concomitant]
  5. VICODIN [Concomitant]
  6. PAXIL [Concomitant]
  7. VALIUM [Concomitant]
  8. HORMONE PATCH [Concomitant]

REACTIONS (2)
  - ANXIETY [None]
  - PSYCHOMOTOR HYPERACTIVITY [None]
